FAERS Safety Report 7249603-X (Version None)
Quarter: 2011Q1

REPORT INFORMATION
  Report Type: 
  Country: None (occurrence: None)
  Receive Date: 20110128
  Receipt Date: 20101231
  Transmission Date: 20110831
  Serious: Yes (Hospitalization)
  Sender: FDA-Public Use
  Company Number: FR-BAYER-2011-000612

PATIENT
  Sex: Male

DRUGS (5)
  1. LOXEN [Concomitant]
     Dosage: 1 TAB MORNING, 1 TAB EVENING
  2. IMOVANE [Concomitant]
     Dosage: 1 TAB EVENING
  3. TOBRAMYCIN [Suspect]
     Indication: PRODUCT USED FOR UNKNOWN INDICATION
     Dosage: UNK
     Dates: start: 20091220
  4. CIFLOX [Suspect]
     Indication: PRODUCT USED FOR UNKNOWN INDICATION
     Dosage: 400 MG, BID
     Route: 042
     Dates: start: 20091220
  5. PREVISCAN [Concomitant]
     Indication: PRODUCT USED FOR UNKNOWN INDICATION
     Dosage: 1 TAB + 3/4 TAB

REACTIONS (4)
  - OVERDOSE [None]
  - HYPOTENSION [None]
  - TONIC CONVULSION [None]
  - METABOLIC ACIDOSIS [None]
